FAERS Safety Report 8252971-3 (Version None)
Quarter: 2012Q2

REPORT INFORMATION
  Report Type: 
  Country: None (occurrence: None)
  Receive Date: 20120402
  Receipt Date: 20120328
  Transmission Date: 20120825
  Serious: Yes (Hospitalization, Disabling)
  Sender: FDA-Public Use
  Company Number: AT-MERCK-1203AUT00011

PATIENT
  Age: 82 Year
  Sex: Female
  Weight: 50 kg

DRUGS (3)
  1. INVANZ [Suspect]
     Indication: ENTEROBACTER INFECTION
     Route: 041
     Dates: start: 20120315, end: 20120322
  2. INVANZ [Suspect]
     Indication: CHOLANGITIS
     Route: 041
     Dates: start: 20120315, end: 20120322
  3. FLUCONAZOLE [Concomitant]
     Indication: CANDIDIASIS
     Route: 042
     Dates: start: 20120315, end: 20120322

REACTIONS (1)
  - ENCEPHALOPATHY [None]
